FAERS Safety Report 4577905-4 (Version None)
Quarter: 2005Q1

REPORT INFORMATION
  Report Type: 
  Country: None (occurrence: None)
  Receive Date: 20050209
  Receipt Date: 20050125
  Transmission Date: 20050727
  Serious: Yes (Other)
  Sender: FDA-Public Use
  Company Number: DE_041214958

PATIENT
  Age: 61 Year
  Sex: Female

DRUGS (5)
  1. GEMZAR [Suspect]
     Indication: BREAST CANCER
     Dosage: 1000 MG/M2
     Dates: start: 20041201
  2. TAXOL [Concomitant]
  3. SODIUM CHLORIDE 0.9% [Concomitant]
  4. ZOFRAN (ONDASETRON HYDROCHLORIDE) [Concomitant]
  5. DEXAMETHASONE [Concomitant]

REACTIONS (3)
  - INFUSION SITE PAIN [None]
  - INJECTION SITE PHLEBITIS [None]
  - INJECTION SITE THROMBOSIS [None]
